FAERS Safety Report 9340090 (Version 1)
Quarter: 2013Q2

REPORT INFORMATION
  Report Type: Spontaneous
  Country: US (occurrence: None)
  Receive Date: 20130607
  Receipt Date: 20130607
  Transmission Date: 20140414
  Serious: No
  Sender: FDA-Public Use
  Company Number: None

PATIENT
  Sex: Male

DRUGS (1)
  1. ZYTIGA [Suspect]
     Route: 048

REACTIONS (6)
  - Stomatitis [None]
  - Dry mouth [None]
  - Headache [None]
  - Nausea [None]
  - Hot flush [None]
  - Influenza like illness [None]
